FAERS Safety Report 12881988 (Version 6)
Quarter: 2017Q3

REPORT INFORMATION
  Report Type: Report from Study
  Country: CA (occurrence: CA)
  Receive Date: 20161025
  Receipt Date: 20170921
  Transmission Date: 20171127
  Serious: Yes (Other)
  Sender: FDA-Public Use
  Company Number: PHHY2016CA049156

PATIENT
  Age: 58 Year
  Sex: Male
  Weight: 63.49 kg

DRUGS (1)
  1. SANDOSTATIN LAR DEPOT [Suspect]
     Active Substance: OCTREOTIDE ACETATE
     Indication: CARCINOID TUMOUR
     Dosage: 30 MG, QMO (EVERY 4 WEEKS)
     Route: 030
     Dates: start: 20160118

REACTIONS (8)
  - Blood pressure increased [Unknown]
  - Body temperature decreased [Unknown]
  - Kidney infection [Unknown]
  - Weight decreased [Unknown]
  - Obstructive airways disorder [Unknown]
  - Heart rate decreased [Unknown]
  - Alopecia [Unknown]
  - Blood pressure diastolic increased [Unknown]

NARRATIVE: CASE EVENT DATE: 20160408
